FAERS Safety Report 5329703-1 (Version None)
Quarter: 2007Q2

REPORT INFORMATION
  Report Type: 
  Country: None (occurrence: None)
  Receive Date: 20070515
  Receipt Date: 20070507
  Transmission Date: 20071010
  Serious: No
  Sender: FDA-Public Use
  Company Number: 2007-158288-NL

PATIENT
  Age: 23 Year
  Sex: Female

DRUGS (1)
  1. ETONOGESTREL [Suspect]
     Indication: CONTRACEPTION
     Dosage: DF
     Route: 057
     Dates: start: 20061110, end: 20070209

REACTIONS (4)
  - BENIGN INTRACRANIAL HYPERTENSION [None]
  - HEADACHE [None]
  - TINNITUS [None]
  - VISUAL DISTURBANCE [None]
